FAERS Safety Report 18057527 (Version 4)
Quarter: 2020Q4

REPORT INFORMATION
  Report Type: Report from Study
  Country: None (occurrence: US)
  Receive Date: 20200723
  Receipt Date: 20201124
  Transmission Date: 20210113
  Serious: Yes (Other)
  Sender: FDA-Public Use
  Company Number: US-ABBVIE-20K-163-3476194-00

PATIENT
  Sex: Female

DRUGS (2)
  1. HUMIRA [Suspect]
     Active Substance: ADALIMUMAB
     Indication: JUVENILE IDIOPATHIC ARTHRITIS
     Route: 058
     Dates: start: 202007
  2. HUMIRA [Suspect]
     Active Substance: ADALIMUMAB
     Indication: UVEITIS
     Route: 058
     Dates: start: 201804, end: 202007

REACTIONS (6)
  - Weight increased [Unknown]
  - Premature delivery [Unknown]
  - Pre-eclampsia [Not Recovered/Not Resolved]
  - Maternal exposure during pregnancy [Unknown]
  - Live birth [Unknown]
  - Fatigue [Unknown]

NARRATIVE: CASE EVENT DATE: 2020
